FAERS Safety Report 8231880-X (Version None)
Quarter: 2012Q1

REPORT INFORMATION
  Report Type: 
  Country: None (occurrence: None)
  Receive Date: 20120320
  Receipt Date: 20120305
  Transmission Date: 20120608
  Serious: Yes (Other)
  Sender: FDA-Public Use
  Company Number: FR-007718

PATIENT
  Age: 70 Year
  Sex: Male
  Weight: 91 kg

DRUGS (6)
  1. CITALOPRAM HYDROBROMIDE [Concomitant]
  2. PREVISCAN /00261401/ [Concomitant]
  3. GLICL;AZIDE [Concomitant]
  4. FIRMAGON [Suspect]
     Indication: PROSTATE CANCER
     Dosage: (80 MG 1X SUBCUTANEOUS)
     Route: 058
     Dates: start: 20110101, end: 20120223
  5. VERAPAMIL [Concomitant]
  6. INSULIN [Concomitant]

REACTIONS (5)
  - INJECTION SITE ERYTHEMA [None]
  - PAIN [None]
  - INFLUENZA LIKE ILLNESS [None]
  - PYREXIA [None]
  - CONFUSIONAL STATE [None]
